FAERS Safety Report 17675068 (Version 8)
Quarter: 2021Q3

REPORT INFORMATION
  Report Type: Report from Study
  Country: US (occurrence: US)
  Receive Date: 20200416
  Receipt Date: 20210930
  Transmission Date: 20211014
  Serious: Yes (Other)
  Sender: FDA-Public Use
  Company Number: US-SHIRE-US202013475

PATIENT
  Age: 63 Year
  Sex: Male
  Weight: 68 kg

DRUGS (27)
  1. HUMAN IMMUNOGLOBULIN; HYALURONIDASE [Suspect]
     Active Substance: HUMAN IMMUNOGLOBULIN G\HYALURONIDASE RECOMBINANT HUMAN
     Indication: IMMUNODEFICIENCY COMMON VARIABLE
     Dosage: 30 GRAM, Q3WEEKS
     Route: 058
     Dates: start: 20170301
  2. DIPHENHYDRAMINE [DIPHENHYDRAMINE HYDROCHLORIDE] [Concomitant]
     Active Substance: DIPHENHYDRAMINE HYDROCHLORIDE
     Dosage: UNK
     Route: 065
  3. TRAMADOL. [Concomitant]
     Active Substance: TRAMADOL
     Dosage: UNK
     Route: 065
  4. HUMAN IMMUNOGLOBULIN; HYALURONIDASE [Suspect]
     Active Substance: HUMAN IMMUNOGLOBULIN G\HYALURONIDASE RECOMBINANT HUMAN
     Dosage: 30 GRAM, Q3WEEKS
     Route: 058
     Dates: start: 2019
  5. LIDOCAINE. [Concomitant]
     Active Substance: LIDOCAINE
     Dosage: UNK
     Route: 065
  6. ERYTHROMYCIN. [Concomitant]
     Active Substance: ERYTHROMYCIN
     Dosage: UNK
     Route: 065
  7. CYMBALTA [Concomitant]
     Active Substance: DULOXETINE HYDROCHLORIDE
     Dosage: UNK
     Route: 065
  8. SUBOXONE [Concomitant]
     Active Substance: BUPRENORPHINE HYDROCHLORIDE\NALOXONE HYDROCHLORIDE
     Dosage: UNK
     Route: 065
  9. DENAVIR [Concomitant]
     Active Substance: PENCICLOVIR
     Dosage: UNK
     Route: 065
  10. VALTRAX [Concomitant]
     Active Substance: DIAZEPAM\ISOPROPAMIDE IODIDE
  11. ALEVE [Concomitant]
     Active Substance: NAPROXEN SODIUM
     Dosage: UNK
     Route: 065
  12. EPINEPHRINE [EPINEPHRINE HYDROCHLORIDE] [Concomitant]
     Dosage: UNK
     Route: 065
  13. IPRATROPIUM BROMIDE. [Concomitant]
     Active Substance: IPRATROPIUM BROMIDE
     Dosage: UNK
     Route: 065
  14. KETOCONAZOLE. [Concomitant]
     Active Substance: KETOCONAZOLE
     Dosage: UNK
     Route: 065
  15. NEURONTIN [Concomitant]
     Active Substance: GABAPENTIN
     Dosage: UNK
     Route: 065
  16. VOLTAREN [DICLOFENAC DIETHYLAMINE] [Concomitant]
     Active Substance: DICLOFENAC DIETHYLAMINE
     Dosage: UNK
     Route: 065
  17. CRESTOR [Concomitant]
     Active Substance: ROSUVASTATIN CALCIUM
  18. HUMAN IMMUNOGLOBULIN; HYALURONIDASE [Suspect]
     Active Substance: HUMAN IMMUNOGLOBULIN G\HYALURONIDASE RECOMBINANT HUMAN
     Dosage: 30 GRAM, Q3WEEKS
     Route: 058
     Dates: start: 20170706
  19. ACETAMINOPHEN. [Concomitant]
     Active Substance: ACETAMINOPHEN
     Dosage: UNK
     Route: 065
  20. XANAX [Concomitant]
     Active Substance: ALPRAZOLAM
     Dosage: UNK
     Route: 065
  21. SYNTHROID [Concomitant]
     Active Substance: LEVOTHYROXINE SODIUM
     Dosage: UNK
     Route: 065
  22. TRAZODONE [Concomitant]
     Active Substance: TRAZODONE HYDROCHLORIDE
     Dosage: UNK
     Route: 065
  23. LEVOTHYROXINE SODIUM. [Concomitant]
     Active Substance: LEVOTHYROXINE SODIUM
  24. NORMAL SALINE [Concomitant]
     Active Substance: SODIUM CHLORIDE
     Dosage: UNK
     Route: 065
  25. CLIMARA PRO [Concomitant]
     Active Substance: ESTRADIOL\LEVONORGESTREL
     Dosage: UNK
     Route: 065
  26. SILVER SULFADIAZINE. [Concomitant]
     Active Substance: SILVER SULFADIAZINE
     Dosage: UNK
     Route: 065
  27. ZOCOR [Concomitant]
     Active Substance: SIMVASTATIN
     Dosage: UNK
     Route: 065

REACTIONS (11)
  - Infusion site haemorrhage [Unknown]
  - Infusion site urticaria [Unknown]
  - Sinusitis [Unknown]
  - Neck surgery [Unknown]
  - Pain [Recovered/Resolved]
  - Drug intolerance [Unknown]
  - Erythema [Recovered/Resolved]
  - Pruritus [Recovered/Resolved]
  - Product administration interrupted [Unknown]
  - Injection site pain [Recovered/Resolved]
  - Burning sensation [Unknown]

NARRATIVE: CASE EVENT DATE: 20210124
